FAERS Safety Report 19026881 (Version 3)
Quarter: 2021Q2

REPORT INFORMATION
  Report Type: Spontaneous
  Country: US (occurrence: US)
  Receive Date: 20210318
  Receipt Date: 20210524
  Transmission Date: 20210717
  Serious: No
  Sender: FDA-Public Use
  Company Number: US-GLAXOSMITHKLINE-US2021AMR061735

PATIENT
  Sex: Female

DRUGS (1)
  1. ALBUTEROL SULFATE. [Suspect]
     Active Substance: ALBUTEROL SULFATE
     Indication: ASYMPTOMATIC COVID-19
     Dosage: UNK

REACTIONS (4)
  - Off label use [Unknown]
  - Product complaint [Unknown]
  - Product dose omission issue [Unknown]
  - Wrong technique in product usage process [Unknown]
